FAERS Safety Report 12958931 (Version 1)
Quarter: 2016Q4

REPORT INFORMATION
  Report Type: Spontaneous
  Country: CN (occurrence: CN)
  Receive Date: 20161121
  Receipt Date: 20161121
  Transmission Date: 20170207
  Serious: Yes (Hospitalization)
  Sender: FDA-Public Use
  Company Number: CN-ROCHE-1856790

PATIENT
  Age: 57 Year
  Sex: Male

DRUGS (1)
  1. ACTILYSE [Suspect]
     Active Substance: ALTEPLASE
     Indication: CEREBRAL INFARCTION
     Dosage: 0.9 ML/KG 10% IV INJECTION, AND 90% IVGTT
     Route: 042
     Dates: start: 20161106, end: 20161106

REACTIONS (2)
  - Pneumonia [Recovering/Resolving]
  - Cerebral infarction [Recovering/Resolving]
